FAERS Safety Report 8933570 (Version 1)
Quarter: 2012Q4

REPORT INFORMATION
  Report Type: 
  Country: US (occurrence: US)
  Receive Date: 20121128
  Receipt Date: 20121128
  Transmission Date: 20130627
  Serious: No
  Sender: FDA-Public Use
  Company Number: US-ABBOTT-12P-163-0999890-00

PATIENT

DRUGS (2)
  1. ANDROGEL [Suspect]
     Indication: PRODUCT USED FOR UNKNOWN INDICATION
     Dosage: Two pump presses
  2. ANDROGEL [Suspect]
     Dosage: one pump press

REACTIONS (2)
  - Blood testosterone increased [Unknown]
  - Drug ineffective [Unknown]
